FAERS Safety Report 7146464-4 (Version None)
Quarter: 2010Q4

REPORT INFORMATION
  Report Type: 
  Country: None (occurrence: None)
  Receive Date: 20101208
  Receipt Date: 20101130
  Transmission Date: 20110411
  Serious: Yes (Other)
  Sender: FDA-Public Use
  Company Number: PHHY2010TW65382

PATIENT

DRUGS (1)
  1. EXJADE [Suspect]
     Indication: THALASSAEMIA
     Dosage: 1250 MG, UNK
     Route: 048

REACTIONS (4)
  - FALL [None]
  - PRURITUS [None]
  - RASH [None]
  - SPINAL COLUMN INJURY [None]
